FAERS Safety Report 4914791-4 (Version None)
Quarter: 2006Q1

REPORT INFORMATION
  Report Type: 
  Country: None (occurrence: None)
  Receive Date: 20060113
  Receipt Date: 20051021
  Transmission Date: 20060701
  Serious: No
  Sender: FDA-Public Use
  Company Number: 2005SP003616

PATIENT
  Age: 52 Year
  Sex: Female
  Weight: 112.9457 kg

DRUGS (6)
  1. LUNESTA [Suspect]
     Indication: INSOMNIA
     Dosage: 3 MG;HS;ORAL
     Route: 048
     Dates: start: 20051018, end: 20051020
  2. NIFEDIPINE [Concomitant]
  3. INDAPAMIDE [Concomitant]
  4. LORAZEPAM [Concomitant]
  5. ^PEROXYPINE^ [Concomitant]
  6. AMITRIPTYLINE [Concomitant]

REACTIONS (1)
  - DYSGEUSIA [None]
